FAERS Safety Report 18355867 (Version 2)
Quarter: 2020Q4

REPORT INFORMATION
  Report Type: Report from Study
  Country: None (occurrence: NL)
  Receive Date: 20201007
  Receipt Date: 20201124
  Transmission Date: 20210114
  Serious: Yes (Other)
  Sender: FDA-Public Use
  Company Number: NL-ABBVIE-20K-114-3598143-00

PATIENT
  Age: 64 Year
  Sex: Male
  Weight: 88 kg

DRUGS (5)
  1. DUODOPA [Suspect]
     Active Substance: CARBIDOPA\LEVODOPA
     Route: 050
  2. DUODOPA [Suspect]
     Active Substance: CARBIDOPA\LEVODOPA
     Route: 050
  3. DUODOPA [Suspect]
     Active Substance: CARBIDOPA\LEVODOPA
     Indication: PARKINSON^S DISEASE
     Dosage: MD: 3.0, CD: 3.5, ED: 2.6, CND: 3.2, REMAINS AT 24 HOURS
     Route: 050
     Dates: start: 20180201
  4. DUODOPA [Suspect]
     Active Substance: CARBIDOPA\LEVODOPA
     Route: 050
  5. DUODOPA [Suspect]
     Active Substance: CARBIDOPA\LEVODOPA
     Route: 050

REACTIONS (20)
  - Fall [Recovered/Resolved]
  - On and off phenomenon [Recovered/Resolved]
  - Emotional disorder [Recovered/Resolved]
  - Middle insomnia [Recovered/Resolved]
  - Irritability [Unknown]
  - Muscle rigidity [Recovered/Resolved]
  - Deep brain stimulation [Unknown]
  - Constipation [Recovered/Resolved]
  - Stoma site discharge [Not Recovered/Not Resolved]
  - Balance disorder [Unknown]
  - Malaise [Recovered/Resolved]
  - Constipation [Not Recovered/Not Resolved]
  - Fibroma [Not Recovered/Not Resolved]
  - Unevaluable event [Recovered/Resolved]
  - Pain [Recovered/Resolved]
  - Quality of life decreased [Unknown]
  - Feeling abnormal [Recovered/Resolved]
  - Contusion [Not Recovered/Not Resolved]
  - Disinhibition [Recovered/Resolved]
  - Hallucination [Recovered/Resolved]

NARRATIVE: CASE EVENT DATE: 202008
